FAERS Safety Report 7843240-1 (Version None)
Quarter: 2011Q4

REPORT INFORMATION
  Report Type: 
  Country: None (occurrence: None)
  Receive Date: 20111025
  Receipt Date: 20111018
  Transmission Date: 20120403
  Serious: No
  Sender: FDA-Public Use
  Company Number: US-PFIZER INC-2011251891

PATIENT
  Sex: Male

DRUGS (7)
  1. MEPHYTON [Concomitant]
     Dosage: 5 MG, UNK
  2. FENTANYL [Concomitant]
     Dosage: 25MCG/HR
  3. CALCIUM CARBONATE [Concomitant]
     Dosage: 600 MG, UNK
  4. FERROUS SULFATE [Concomitant]
     Dosage: 325 MG, UNK
  5. SUTENT [Suspect]
     Dosage: 50 MG, 1 TABLET BY MOUTH EVERY OTHER DAY
     Route: 048
  6. HYDROMORPHONE [Concomitant]
     Dosage: 4 MG, UNK
  7. PRILOSEC [Concomitant]
     Dosage: 20 MG, UNK

REACTIONS (3)
  - NAUSEA [None]
  - HYPERHIDROSIS [None]
  - BLOOD PRESSURE INCREASED [None]
